FAERS Safety Report 5381733-X (Version None)
Quarter: 2007Q3

REPORT INFORMATION
  Report Type: 
  Country: None (occurrence: None)
  Receive Date: 20070709
  Receipt Date: 20070625
  Transmission Date: 20080115
  Serious: Yes (Other)
  Sender: FDA-Public Use
  Company Number: PHBS2007JP10940

PATIENT
  Age: 56 Year
  Sex: Male

DRUGS (10)
  1. CYCLOSPORINE [Suspect]
     Indication: RENAL TRANSPLANT
     Dosage: 600 MG/DAY
     Route: 065
  2. CYCLOSPORINE [Suspect]
     Dosage: 300 MG/DAY
     Route: 065
  3. CYCLOSPORINE [Suspect]
     Dosage: 600 MG/DAY
     Route: 065
  4. CYCLOSPORINE [Suspect]
     Dosage: 500 MG/DAY
     Route: 065
  5. CYCLOSPORINE [Suspect]
     Dosage: 400 MG/DAY
     Route: 065
  6. CYCLOSPORINE [Suspect]
     Dosage: 350 MG/DAY
     Route: 065
  7. BASILIXIMAB [Suspect]
     Indication: RENAL TRANSPLANT
     Dosage: 20 MG ON DAY 0 AND DAY 4
     Route: 065
  8. PREDNISOLONE [Suspect]
     Indication: RENAL TRANSPLANT
     Route: 065
  9. CYCLOPHOSPHAMIDE [Suspect]
     Dosage: 100 MG/DAY
  10. CYCLOPHOSPHAMIDE [Suspect]
     Dosage: 200 MG/DAY
     Route: 065

REACTIONS (7)
  - BLOOD CREATININE INCREASED [None]
  - COMPLICATIONS OF TRANSPLANTED KIDNEY [None]
  - CYTOMEGALOVIRUS INFECTION [None]
  - NEPHROPATHY TOXIC [None]
  - RENAL TUBULAR NECROSIS [None]
  - TRANSPLANT REJECTION [None]
  - URINARY TRACT INFECTION [None]
